FAERS Safety Report 8822379 (Version 1)
Quarter: 2012Q4

REPORT INFORMATION
  Report Type: 
  Country: US (occurrence: US)
  Receive Date: 20121003
  Receipt Date: 20121003
  Transmission Date: 20130627
  Serious: Yes (Death)
  Sender: FDA-Public Use
  Company Number: PHEH2012US019153

PATIENT
  Sex: Female
  Weight: 68.03 kg

DRUGS (1)
  1. EXJADE [Suspect]
     Dosage: 1500 mg, QD
     Route: 048

REACTIONS (1)
  - Neoplasm malignant [Fatal]
